FAERS Safety Report 14677101 (Version 1)
Quarter: 2018Q1

REPORT INFORMATION
  Report Type: Spontaneous
  Country: US (occurrence: US)
  Receive Date: 20180323
  Receipt Date: 20180323
  Transmission Date: 20180509
  Serious: Yes (Hospitalization)
  Sender: FDA-Public Use
  Company Number: None

PATIENT
  Sex: Female

DRUGS (8)
  1. SERTRALINE [Concomitant]
     Active Substance: SERTRALINE HYDROCHLORIDE
  2. PROMETHAZINE [Concomitant]
     Active Substance: PROMETHAZINE\PROMETHAZINE HYDROCHLORIDE
  3. CLINDAMYCIN. [Concomitant]
     Active Substance: CLINDAMYCIN
  4. BACLOFEN. [Concomitant]
     Active Substance: BACLOFEN
  5. LIDOCAINE. [Concomitant]
     Active Substance: LIDOCAINE
  6. GLIPIZIDE. [Concomitant]
     Active Substance: GLIPIZIDE
  7. SPRYCEL [Suspect]
     Active Substance: DASATINIB
     Route: 048
     Dates: start: 20170920
  8. OXYCOD [Concomitant]

REACTIONS (2)
  - Fall [None]
  - Hip arthroplasty [None]

NARRATIVE: CASE EVENT DATE: 2018
